FAERS Safety Report 19964594 (Version 2)
Quarter: 2023Q2

REPORT INFORMATION
  Report Type: Report from Study
  Country: US (occurrence: US)
  Receive Date: 20211018
  Receipt Date: 20230412
  Transmission Date: 20230722
  Serious: Yes (Other)
  Sender: FDA-Public Use
  Company Number: US-KOREA IPSEN PHARMA-2021-25018

PATIENT
  Age: 56 Year
  Sex: Male

DRUGS (1)
  1. SOMATULINE DEPOT [Suspect]
     Active Substance: LANREOTIDE ACETATE
     Indication: Carcinoid tumour of the small bowel
     Route: 058
     Dates: start: 201911

REACTIONS (6)
  - Cholelithiasis [Recovering/Resolving]
  - Injection site mass [Recovering/Resolving]
  - Flushing [Not Recovered/Not Resolved]
  - Faeces discoloured [Not Recovered/Not Resolved]
  - Nausea [Not Recovered/Not Resolved]
  - Erythema [Unknown]
